FAERS Safety Report 6228367-2 (Version None)
Quarter: 2009Q2

REPORT INFORMATION
  Report Type: 
  Country: None (occurrence: None)
  Receive Date: 20090612
  Receipt Date: 20090604
  Transmission Date: 20091009
  Serious: Yes (Hospitalization)
  Sender: FDA-Public Use
  Company Number: US-ELI_LILLY_AND_COMPANY-US200905001565

PATIENT
  Sex: Female

DRUGS (2)
  1. HUMATROPE [Suspect]
     Dosage: 0.81 MG, QOD
  2. HUMATROPE [Suspect]
     Dosage: 0.6 MG, QOD

REACTIONS (3)
  - ACCIDENT [None]
  - FOOT FRACTURE [None]
  - MUSCULAR WEAKNESS [None]
